FAERS Safety Report 9260058 (Version 1)
Quarter: 2013Q2

REPORT INFORMATION
  Report Type: Spontaneous
  Country: US (occurrence: US)
  Receive Date: 20130429
  Receipt Date: 20130429
  Transmission Date: 20140414
  Serious: Yes (Hospitalization, Other)
  Sender: FDA-Public Use
  Company Number: US-BAYER-2013-051712

PATIENT
  Age: 47 Year
  Sex: Female
  Weight: 56 kg

DRUGS (16)
  1. YAZ [Suspect]
     Dosage: UNK
     Dates: start: 20080626, end: 20081120
  2. YASMIN [Suspect]
     Dosage: UNK
     Dates: start: 20060826, end: 20060901
  3. YASMIN [Suspect]
     Dosage: UNK
     Dates: start: 20061024, end: 20061220
  4. WELLBUTRIN [Concomitant]
     Indication: DEPRESSION
     Dosage: 150 MG, BID
  5. TRAZODONE [Concomitant]
     Dosage: 150 MG,DAILY
  6. KLONOPIN [Concomitant]
     Dosage: 1 MG, TID
  7. MINOCYCLINE [Concomitant]
     Indication: ACNE
     Dosage: 100 MG, BID
  8. LUNESTA [Concomitant]
     Dosage: 3 UNK, UNK
  9. LAMICTAL [Concomitant]
     Dosage: 200 MG, DAILY
  10. FLUCONAZOLE [Concomitant]
     Dosage: UNK
  11. PROMETHAZINE [Concomitant]
     Dosage: UNK
     Dates: end: 20080905
  12. PULMICORT RESPULES [Concomitant]
     Dosage: UNK
     Dates: end: 20081112
  13. TRI-SPRINTEC [Concomitant]
     Dosage: UNK
  14. TRI-SPRINTEC [Concomitant]
     Dosage: UNK
     Dates: start: 20061220, end: 20080530
  15. PREMARIN VAGINAL [Concomitant]
     Dosage: UNK
  16. PREMARIN VAGINAL [Concomitant]
     Dosage: UNK
     Dates: end: 20100618

REACTIONS (4)
  - Cerebral artery occlusion [Recovered/Resolved]
  - Pulmonary embolism [None]
  - Deep vein thrombosis [None]
  - Cerebral infarction [Recovered/Resolved]
